FAERS Safety Report 13905876 (Version 2)
Quarter: 2017Q3

REPORT INFORMATION
  Report Type: Spontaneous
  Country: CN (occurrence: CN)
  Receive Date: 20170825
  Receipt Date: 20170830
  Transmission Date: 20171127
  Serious: Yes (Hospitalization, Other)
  Sender: FDA-Public Use
  Company Number: CN-PFIZER INC-2017367556

PATIENT
  Age: 66 Year
  Sex: Male

DRUGS (2)
  1. CORDARONE [Suspect]
     Active Substance: AMIODARONE HYDROCHLORIDE
     Indication: ATRIAL FIBRILLATION
     Dosage: 0.2 G, DAILY
     Route: 048
     Dates: start: 20170205, end: 20170517
  2. BETALOC [Concomitant]
     Active Substance: METOPROLOL TARTRATE
     Dosage: UNK
     Dates: start: 20170205, end: 20170517

REACTIONS (5)
  - Sinus bradycardia [Unknown]
  - Arrhythmia [Recovering/Resolving]
  - Thrombocytopenia [Recovering/Resolving]
  - Myocardial infarction [Unknown]
  - Transaminases increased [Recovering/Resolving]

NARRATIVE: CASE EVENT DATE: 20170517
